FAERS Safety Report 13945638 (Version 1)
Quarter: 2017Q3

REPORT INFORMATION
  Report Type: Spontaneous
  Country: JP (occurrence: JP)
  Receive Date: 20170907
  Receipt Date: 20170907
  Transmission Date: 20171128
  Serious: Yes (Other)
  Sender: FDA-Public Use
  Company Number: JP-PFIZER INC-2017386666

PATIENT
  Age: 67 Year
  Sex: Male

DRUGS (4)
  1. ELIQUIS [Suspect]
     Active Substance: APIXABAN
     Indication: CEREBROVASCULAR ACCIDENT PROPHYLAXIS
     Dosage: 5 MG, 2X/DAY
     Route: 048
     Dates: start: 20140808
  2. MEROPENEM. [Suspect]
     Active Substance: MEROPENEM
     Dosage: UNK
     Route: 041
     Dates: start: 20170727
  3. THYRADIN-S [Suspect]
     Active Substance: LEVOTHYROXINE
     Dosage: 50 UG, UNK
     Route: 065
  4. CARBOCISTEINE [Suspect]
     Active Substance: CARBOCYSTEINE
     Dosage: 500 MG, UNK
     Route: 065

REACTIONS (2)
  - Circulatory collapse [Recovered/Resolved]
  - Pneumonia aspiration [Recovered/Resolved]

NARRATIVE: CASE EVENT DATE: 20170728
